FAERS Safety Report 8252261-9 (Version None)
Quarter: 2012Q2

REPORT INFORMATION
  Report Type: 
  Country: None (occurrence: None)
  Receive Date: 20120402
  Receipt Date: 20110927
  Transmission Date: 20120825
  Serious: No
  Sender: FDA-Public Use
  Company Number: US-ABBOTT-11P-163-0859515-00

PATIENT
  Age: 46 Year
  Sex: Male
  Weight: 74.91 kg

DRUGS (5)
  1. ANDROGEL [Suspect]
     Indication: BLOOD TESTOSTERONE DECREASED
     Dosage: 4 PUMPS DAILY
     Dates: start: 20100701
  2. UNKNOWN EYE DROPS [Concomitant]
     Indication: DRY EYE
  3. ANDROGEL [Suspect]
     Dosage: 6 PUMPS DAILY
  4. ANDROGEL [Suspect]
     Dosage: 8 PUMPS DAILY
  5. PAXIL [Concomitant]
     Indication: OBSESSIVE-COMPULSIVE DISORDER

REACTIONS (1)
  - DRUG INEFFECTIVE [None]
